FAERS Safety Report 11368503 (Version 14)
Quarter: 2018Q4

REPORT INFORMATION
  Report Type: Report from Study
  Country: US (occurrence: US)
  Receive Date: 20150812
  Receipt Date: 20181224
  Transmission Date: 20190204
  Serious: Yes (Other)
  Sender: FDA-Public Use
  Company Number: PHHY2014US084078

PATIENT
  Age: 35 Year
  Sex: Female

DRUGS (2)
  1. GLIMEPIRIDE. [Concomitant]
     Active Substance: GLIMEPIRIDE
     Indication: PRODUCT USED FOR UNKNOWN INDICATION
     Dosage: 1 MG, QD
     Route: 065
     Dates: start: 20171113
  2. GILENYA [Suspect]
     Active Substance: FINGOLIMOD HYDROCHLORIDE
     Indication: MULTIPLE SCLEROSIS
     Dosage: UNK, QD
     Route: 048

REACTIONS (30)
  - Low density lipoprotein increased [Unknown]
  - Ear infection [Recovered/Resolved]
  - Muscle spasms [Unknown]
  - Lentigo [Unknown]
  - Tremor [Recovered/Resolved]
  - Haemangioma of skin [Unknown]
  - Somnolence [Recovered/Resolved]
  - Fibrous histiocytoma [Unknown]
  - Thyroid mass [Unknown]
  - Vitamin D deficiency [Unknown]
  - Hyperhidrosis [Recovered/Resolved]
  - Platelet count increased [Unknown]
  - Intervertebral disc protrusion [Unknown]
  - Blood cholesterol increased [Unknown]
  - Muscular weakness [Recovered/Resolved]
  - Cafe au lait spots [Unknown]
  - Sebaceous hyperplasia [Unknown]
  - Headache [Recovered/Resolved]
  - Gaze palsy [Unknown]
  - Parosmia [Unknown]
  - Intervertebral disc disorder [Unknown]
  - Melanocytic naevus [Unknown]
  - Headache [Recovered/Resolved]
  - Headache [Recovered/Resolved]
  - Depression [Unknown]
  - Syncope [Recovered/Resolved]
  - Vitreous floaters [Recovered/Resolved]
  - Paraesthesia [Recovered/Resolved]
  - Psoriasis [Unknown]
  - Seborrhoeic keratosis [Unknown]

NARRATIVE: CASE EVENT DATE: 20140506
